APPROVED DRUG PRODUCT: METOPROLOL TARTRATE
Active Ingredient: METOPROLOL TARTRATE
Strength: 50MG
Dosage Form/Route: TABLET;ORAL
Application: A212402 | Product #002
Applicant: ZYDUS PHARMACEUTICALS USA INC
Approved: Apr 19, 2023 | RLD: No | RS: No | Type: DISCN